FAERS Safety Report 20807205 (Version 2)
Quarter: 2022Q2

REPORT INFORMATION
  Report Type: Spontaneous
  Country: FR (occurrence: FR)
  Receive Date: 20220510
  Receipt Date: 20220516
  Transmission Date: 20220721
  Serious: Yes (Other)
  Sender: FDA-Public Use
  Company Number: None

PATIENT
  Age: 65 Year
  Sex: Male
  Weight: 97 kg

DRUGS (8)
  1. HEPARIN SODIUM [Interacting]
     Active Substance: HEPARIN SODIUM
     Indication: Thrombosis
     Dosage: STARTING AT 100 IU/KG/12H
     Route: 042
     Dates: start: 20220323, end: 20220325
  2. KARDEGIC [Interacting]
     Active Substance: ASPIRIN DL-LYSINE
     Indication: Cardiovascular event prophylaxis
     Dosage: 75 MG, QD
     Route: 048
  3. UROKINASE [Interacting]
     Active Substance: UROKINASE
     Indication: Thrombolysis
     Dosage: 600000 IU, QID
     Route: 013
     Dates: start: 20220324, end: 20220325
  4. CLOPIDOGREL BISULFATE [Interacting]
     Active Substance: CLOPIDOGREL BISULFATE
     Indication: Thrombosis
     Dosage: 75 MG, QD
     Route: 048
     Dates: start: 20220324, end: 20220324
  5. APIXABAN [Concomitant]
     Active Substance: APIXABAN
     Dosage: 5 MG, BID
     Route: 065
  6. ATORVASTATIN [Concomitant]
     Active Substance: ATORVASTATIN
     Dosage: 80 MG, QD
  7. RAMIPRIL [Concomitant]
     Active Substance: RAMIPRIL
     Dosage: 5 MG, QD
  8. CARVEDILOL [Concomitant]
     Active Substance: CARVEDILOL
     Dosage: 125 MG, BID

REACTIONS (3)
  - Haemorrhage [Recovered/Resolved]
  - Compartment syndrome [Unknown]
  - Drug interaction [Recovered/Resolved]

NARRATIVE: CASE EVENT DATE: 20220325
